FAERS Safety Report 16658807 (Version 2)
Quarter: 2019Q3

REPORT INFORMATION
  Report Type: Spontaneous
  Country: DE (occurrence: DE)
  Receive Date: 20190801
  Receipt Date: 20190801
  Transmission Date: 20191004
  Serious: Yes (Hospitalization, Other)
  Sender: FDA-Public Use
  Company Number: PHHY2018DE202221

PATIENT
  Sex: Female
  Weight: 94 kg

DRUGS (25)
  1. DEKRISTOL [Concomitant]
     Active Substance: CHOLECALCIFEROL
     Indication: PRODUCT USED FOR UNKNOWN INDICATION
     Dosage: 20000 IU, Q2W
     Route: 065
  2. METOCLOPRAMIDE. [Concomitant]
     Active Substance: METOCLOPRAMIDE
     Indication: PRODUCT USED FOR UNKNOWN INDICATION
     Dosage: 20 GTT, PRN
     Route: 065
  3. IBUPROFEN. [Suspect]
     Active Substance: IBUPROFEN
     Indication: MENTAL DISORDER
  4. L-THYROXIN [Concomitant]
     Active Substance: LEVOTHYROXINE SODIUM
     Indication: HYPOTHYROIDISM
     Dosage: UNK
     Route: 065
     Dates: start: 1992, end: 2019
  5. L-THYROXIN [Concomitant]
     Active Substance: LEVOTHYROXINE SODIUM
     Dosage: 37.5 UG, QD (HALF OF 75 MG IN THE MORNINGS)
     Route: 065
  6. NOVALGIN [Concomitant]
     Indication: PRODUCT USED FOR UNKNOWN INDICATION
     Dosage: 40 GTT, PRN
     Route: 065
  7. ESCITALOPRAM [Concomitant]
     Active Substance: ESCITALOPRAM OXALATE
     Dosage: 10 MG, QD (IN THE AFTERNOON)
     Route: 065
     Dates: start: 2017
  8. VALSARTAN 1 A PHARMA [Suspect]
     Active Substance: VALSARTAN
     Indication: HYPERTENSION
     Dosage: 80 MG, UNK, IN THE MORNINGS
     Route: 065
     Dates: start: 2003
  9. IBUPROFEN. [Suspect]
     Active Substance: IBUPROFEN
     Indication: SOMATIC SYMPTOM DISORDER
  10. VESIKUR [Concomitant]
     Active Substance: SOLIFENACIN SUCCINATE
     Indication: MICTURITION URGENCY
     Dosage: UNK
     Route: 065
     Dates: end: 2018
  11. L-THYROXIN [Concomitant]
     Active Substance: LEVOTHYROXINE SODIUM
     Dosage: 100 UG, QD
     Route: 065
  12. CIPRAMIL [Concomitant]
     Indication: PRODUCT USED FOR UNKNOWN INDICATION
     Dosage: 20 OT, QD (IN THE MORNING)
     Route: 065
  13. VALSARTAN 1 A PHARMA [Suspect]
     Active Substance: VALSARTAN
     Dosage: 80 MG, BID
     Route: 065
     Dates: start: 200304, end: 201807
  14. CLARITHROMYCIN. [Suspect]
     Active Substance: CLARITHROMYCIN
     Indication: PNEUMONIA
     Dosage: UNK
     Route: 065
     Dates: end: 201609
  15. L-THYROXIN [Concomitant]
     Active Substance: LEVOTHYROXINE SODIUM
     Dosage: 80 UG, QD
     Route: 065
  16. L-THYROXIN [Concomitant]
     Active Substance: LEVOTHYROXINE SODIUM
     Dosage: 75 UG, QD
     Route: 048
  17. OMEPRAZOLE. [Concomitant]
     Active Substance: OMEPRAZOLE
     Indication: PRODUCT USED FOR UNKNOWN INDICATION
     Dosage: 20 MG, QD (IN THE MORNINGS)
     Route: 065
  18. SULTANOL [Concomitant]
     Active Substance: ALBUTEROL SULFATE
     Indication: PNEUMONIA
     Dosage: 8 ML, PRN
     Route: 055
  19. IBUPROFEN. [Suspect]
     Active Substance: IBUPROFEN
     Indication: PAIN
     Dosage: 600 MG, BID (IN THE MORNINGS AND IN THE EVENINGS)
     Route: 065
  20. ESCITALOPRAM [Concomitant]
     Active Substance: ESCITALOPRAM OXALATE
     Dosage: 10 MG, QD (IN THE MORNINGS)
     Route: 065
  21. ESCITALOPRAM [Concomitant]
     Active Substance: ESCITALOPRAM OXALATE
     Dosage: 10 MG, UNK
     Route: 065
     Dates: start: 2017, end: 2019
  22. L-THYROXIN [Concomitant]
     Active Substance: LEVOTHYROXINE SODIUM
     Dosage: 50 UG, QD (IN THE MORNINGS)
     Route: 065
  23. L-THYROXIN [Concomitant]
     Active Substance: LEVOTHYROXINE SODIUM
     Dosage: 75 UG, QD (IN THE MORNINGS)
     Route: 065
  24. VALSARTAN. [Suspect]
     Active Substance: VALSARTAN
     Indication: HYPERTENSION
     Dosage: 80 MG, BID (MORNING AND EVENING)
     Route: 048
     Dates: start: 201308
  25. ESCITALOPRAM [Concomitant]
     Active Substance: ESCITALOPRAM OXALATE
     Indication: DEPRESSION
     Dosage: 20 MG, UNK
     Route: 065
     Dates: start: 2012, end: 2017

REACTIONS (76)
  - Cholesterosis [Unknown]
  - Gait disturbance [Recovering/Resolving]
  - Gastric disorder [Not Recovered/Not Resolved]
  - Eye disorder [Not Recovered/Not Resolved]
  - Feeling abnormal [Not Recovered/Not Resolved]
  - Osteoarthritis [Unknown]
  - Angiotensin converting enzyme increased [Unknown]
  - Malignant melanoma [Not Recovered/Not Resolved]
  - Pain [Recovering/Resolving]
  - Asthenia [Unknown]
  - Cholecystitis [Unknown]
  - Neuropathy peripheral [Unknown]
  - Arthralgia [Recovering/Resolving]
  - Cardiovascular disorder [Not Recovered/Not Resolved]
  - Effusion [Unknown]
  - Liver function test abnormal [Not Recovered/Not Resolved]
  - Asthma [Unknown]
  - Micturition urgency [Unknown]
  - Poor quality sleep [Recovering/Resolving]
  - Quality of life decreased [Unknown]
  - Acute kidney injury [Unknown]
  - Sjogren^s syndrome [Unknown]
  - Sarcoidosis [Unknown]
  - Abdominal pain upper [Not Recovered/Not Resolved]
  - Urinary tract infection [Unknown]
  - Somatic symptom disorder [Recovering/Resolving]
  - Mental disorder [Recovering/Resolving]
  - Muscle tightness [Unknown]
  - Abdominal pain [Unknown]
  - Rib fracture [Unknown]
  - Fall [Unknown]
  - Depression [Recovering/Resolving]
  - Stress [Recovering/Resolving]
  - Drug hypersensitivity [Not Recovered/Not Resolved]
  - Pruritus [Unknown]
  - Spinal osteoarthritis [Unknown]
  - Intervertebral disc degeneration [Unknown]
  - Musculoskeletal stiffness [Unknown]
  - Myalgia [Not Recovered/Not Resolved]
  - Feeling hot [Unknown]
  - Nerve injury [Unknown]
  - Food allergy [Not Recovered/Not Resolved]
  - Fear [Recovering/Resolving]
  - Asthenia [Not Recovered/Not Resolved]
  - Muscle spasms [Not Recovered/Not Resolved]
  - Anxiety disorder [Recovering/Resolving]
  - Blood creatinine abnormal [Not Recovered/Not Resolved]
  - Abdominal discomfort [Unknown]
  - Blood thyroid stimulating hormone decreased [Unknown]
  - Gastrointestinal stromal tumour [Recovered/Resolved with Sequelae]
  - Visual impairment [Not Recovered/Not Resolved]
  - Obesity [Unknown]
  - Incontinence [Not Recovered/Not Resolved]
  - Decreased appetite [Unknown]
  - Lymphadenopathy [Unknown]
  - Diverticulum [Unknown]
  - Fibromyalgia [Not Recovered/Not Resolved]
  - Adjustment disorder with depressed mood [Not Recovered/Not Resolved]
  - Pneumonia [Unknown]
  - Helicobacter gastritis [Unknown]
  - Melanocytic naevus [Not Recovered/Not Resolved]
  - Arthropathy [Unknown]
  - Dizziness [Unknown]
  - Abdominal pain lower [Unknown]
  - Headache [Unknown]
  - Bladder metaplasia [Unknown]
  - Skin cancer [Not Recovered/Not Resolved]
  - Post procedural hypothyroidism [Unknown]
  - Renal atrophy [Unknown]
  - Bladder disorder [Unknown]
  - Sensitivity to weather change [Not Recovered/Not Resolved]
  - Hyperacusis [Not Recovered/Not Resolved]
  - Pain in extremity [Recovering/Resolving]
  - Disturbance in attention [Unknown]
  - Hypertonia [Unknown]
  - Back pain [Unknown]

NARRATIVE: CASE EVENT DATE: 2003
